FAERS Safety Report 8180147-7 (Version None)
Quarter: 2012Q1

REPORT INFORMATION
  Report Type: 
  Country: None (occurrence: None)
  Receive Date: 20120215
  Receipt Date: 20120130
  Transmission Date: 20120608
  Serious: Yes (Other)
  Sender: FDA-Public Use
  Company Number: 2012030961

PATIENT
  Age: 53 Year
  Sex: Female

DRUGS (5)
  1. PRIVIGEN [Suspect]
  2. PRIVIGEN [Suspect]
     Indication: PSEUDOMEMBRANOUS COLITIS
     Dosage: SEE IMAGE
     Route: 042
     Dates: start: 20120114, end: 20120118
  3. PRIVIGEN [Suspect]
     Indication: PSEUDOMEMBRANOUS COLITIS
     Dosage: SEE IMAGE
     Route: 042
     Dates: start: 20120114, end: 20120118
  4. PRIVIGEN [Suspect]
     Indication: PSEUDOMEMBRANOUS COLITIS
     Dosage: SEE IMAGE
     Route: 042
     Dates: start: 20120114, end: 20120118
  5. PRIVIGEN [Suspect]

REACTIONS (3)
  - HAEMOLYTIC TRANSFUSION REACTION [None]
  - HAEMOGLOBIN DECREASED [None]
  - OFF LABEL USE [None]
